FAERS Safety Report 19903331 (Version 1)
Quarter: 2021Q4

REPORT INFORMATION
  Report Type: Other
  Country: CA (occurrence: CA)
  Receive Date: 20211001
  Receipt Date: 20211001
  Transmission Date: 20220304
  Serious: Yes (Other)
  Sender: FDA-Public Use
  Company Number: CA-ROCHE-1717279

PATIENT
  Age: 60 Year
  Sex: Female
  Weight: 132 kg

DRUGS (27)
  1. RITUXAN [Suspect]
     Active Substance: RITUXIMAB
     Indication: Myasthenia gravis
     Route: 042
     Dates: start: 20160224
  2. RITUXAN [Suspect]
     Active Substance: RITUXIMAB
     Indication: SLE arthritis
     Route: 042
     Dates: start: 20180102
  3. RITUXAN [Suspect]
     Active Substance: RITUXIMAB
     Indication: Connective tissue disorder
  4. ACETAMINOPHEN [Concomitant]
     Active Substance: ACETAMINOPHEN
     Indication: Premedication
     Route: 048
     Dates: start: 20160224
  5. ACETAMINOPHEN [Concomitant]
     Active Substance: ACETAMINOPHEN
     Route: 048
     Dates: start: 20180102
  6. DIPHENHYDRAMINE [Concomitant]
     Active Substance: DIPHENHYDRAMINE
     Indication: Premedication
     Route: 048
     Dates: start: 20160224
  7. DIPHENHYDRAMINE [Concomitant]
     Active Substance: DIPHENHYDRAMINE
     Route: 048
     Dates: start: 20180102
  8. METHYLPREDNISOLONE [Concomitant]
     Active Substance: METHYLPREDNISOLONE
     Indication: Premedication
     Route: 042
     Dates: start: 20160224
  9. METHYLPREDNISOLONE [Concomitant]
     Active Substance: METHYLPREDNISOLONE
     Route: 042
     Dates: start: 20180102
  10. VITAMIN B12 [Concomitant]
     Active Substance: CYANOCOBALAMIN
  11. IMURAN [Concomitant]
     Active Substance: AZATHIOPRINE
  12. CITALOPRAM [Concomitant]
     Active Substance: CITALOPRAM HYDROBROMIDE
  13. FOLIC ACID [Concomitant]
     Active Substance: FOLIC ACID
  14. PREDNISONE [Concomitant]
     Active Substance: PREDNISONE
     Dosage: EYE DROPS
  15. PREDNISONE [Concomitant]
     Active Substance: PREDNISONE
     Route: 065
  16. FOSAVANCE [Concomitant]
     Active Substance: ALENDRONATE SODIUM\CHOLECALCIFEROL
  17. AZATHIOPRINE [Concomitant]
     Active Substance: AZATHIOPRINE
  18. VICTOZA [Concomitant]
     Active Substance: LIRAGLUTIDE
  19. GRAVOL [Concomitant]
     Active Substance: DIMENHYDRINATE
  20. AZARGA [Concomitant]
     Active Substance: BRINZOLAMIDE\TIMOLOL MALEATE
  21. HUMAN IMMUNOGLOBULIN G [Concomitant]
     Active Substance: HUMAN IMMUNOGLOBULIN G
  22. MESTINON [Concomitant]
     Active Substance: PYRIDOSTIGMINE BROMIDE
  23. ROSUVASTATIN [Concomitant]
     Active Substance: ROSUVASTATIN
  24. TOPAMAX [Concomitant]
     Active Substance: TOPIRAMATE
  25. GABAPENTIN [Concomitant]
     Active Substance: GABAPENTIN
  26. TYLENOL WITH CODEINE [Concomitant]
     Active Substance: ACETAMINOPHEN\CODEINE PHOSPHATE
  27. METFORMIN [Concomitant]
     Active Substance: METFORMIN HYDROCHLORIDE

REACTIONS (18)
  - Herpes zoster [Unknown]
  - Blood pressure increased [Unknown]
  - Throat irritation [Recovered/Resolved]
  - Diarrhoea [Not Recovered/Not Resolved]
  - Oxygen saturation decreased [Unknown]
  - Dyspnoea [Recovered/Resolved]
  - Chest discomfort [Recovered/Resolved]
  - Nasopharyngitis [Not Recovered/Not Resolved]
  - Angiopathy [Unknown]
  - Blood pressure fluctuation [Unknown]
  - Oxygen saturation decreased [Unknown]
  - Fall [Unknown]
  - Thermal burn [Unknown]
  - Poor venous access [Unknown]
  - Infusion related reaction [Recovered/Resolved]
  - Blood pressure diastolic abnormal [Unknown]
  - Feeling abnormal [Unknown]
  - Intentional product use issue [Unknown]

NARRATIVE: CASE EVENT DATE: 20160224
